FAERS Safety Report 5497546-4 (Version None)
Quarter: 2007Q4

REPORT INFORMATION
  Report Type: 
  Country: None (occurrence: None)
  Receive Date: 20071025
  Receipt Date: 20070118
  Transmission Date: 20080405
  Serious: No
  Sender: FDA-Public Use
  Company Number: A0630454A

PATIENT
  Age: 77 Year
  Sex: Female

DRUGS (2)
  1. ADVAIR DISKUS 100/50 [Suspect]
     Indication: ASTHMA
     Dosage: 1PUFF TWICE PER DAY
     Route: 055
     Dates: end: 20060701
  2. FOSAMAX [Concomitant]

REACTIONS (2)
  - BONE DENSITY DECREASED [None]
  - CARDIAC MURMUR [None]
